FAERS Safety Report 18175832 (Version 1)
Quarter: 2020Q3

REPORT INFORMATION
  Report Type: Spontaneous
  Country: US (occurrence: US)
  Receive Date: 20200820
  Receipt Date: 20200820
  Transmission Date: 20201103
  Serious: Yes (Other)
  Sender: FDA-Public Use
  Company Number: US-REGENERON PHARMACEUTICALS, INC.-2020-70222

PATIENT

DRUGS (1)
  1. EYLEA [Suspect]
     Active Substance: AFLIBERCEPT
     Indication: NEOVASCULAR AGE-RELATED MACULAR DEGENERATION
     Dosage: UNKNOWN DOSE, FIRST INJECTION
     Route: 031
     Dates: start: 20200813, end: 20200813

REACTIONS (5)
  - Hypothermia [Not Recovered/Not Resolved]
  - Lip pain [Unknown]
  - Lacrimation increased [Unknown]
  - Visual impairment [Recovering/Resolving]
  - Rhinorrhoea [Unknown]

NARRATIVE: CASE EVENT DATE: 20200813
